FAERS Safety Report 7993000-6 (Version None)
Quarter: 2011Q4

REPORT INFORMATION
  Report Type: 
  Country: None (occurrence: None)
  Receive Date: 20111219
  Receipt Date: 20110404
  Transmission Date: 20120403
  Serious: No
  Sender: FDA-Public Use
  Company Number: US-ASTRAZENECA-2011SE18937

PATIENT
  Age: 588 Month
  Sex: Male

DRUGS (2)
  1. DIOVAN [Concomitant]
  2. CRESTOR [Suspect]
     Indication: BLOOD CHOLESTEROL INCREASED
     Route: 048
     Dates: start: 20070101

REACTIONS (5)
  - FALL [None]
  - BACK INJURY [None]
  - HEMIPARESIS [None]
  - BURNING SENSATION [None]
  - INTERVERTEBRAL DISC PROTRUSION [None]
